FAERS Safety Report 10195323 (Version 1)
Quarter: 2014Q2

REPORT INFORMATION
  Report Type: Report from Study
  Country: CA (occurrence: CA)
  Receive Date: 20140526
  Receipt Date: 20140526
  Transmission Date: 20141212
  Serious: Yes (Life-Threatening, Hospitalization)
  Sender: FDA-Public Use
  Company Number: CA-JNJFOC-20140515203

PATIENT
  Age: 50 Year
  Sex: Female
  Weight: 91 kg

DRUGS (2)
  1. REMICADE [Suspect]
     Indication: RHEUMATOID ARTHRITIS
     Route: 042
     Dates: start: 20140417, end: 20140501
  2. VALSARTAN [Concomitant]
     Route: 065

REACTIONS (1)
  - Cardiomyopathy [Not Recovered/Not Resolved]
